FAERS Safety Report 14533225 (Version 1)
Quarter: 2018Q1

REPORT INFORMATION
  Report Type: Spontaneous
  Country: US (occurrence: US)
  Receive Date: 20180215
  Receipt Date: 20180215
  Transmission Date: 20180509
  Serious: No
  Sender: FDA-Public Use
  Company Number: US-VIFOR (INTERNATIONAL) INC.-VIT-2018-00856

PATIENT
  Age: 65 Year
  Sex: Female
  Weight: 68 kg

DRUGS (13)
  1. MIRCERA [Suspect]
     Active Substance: METHOXY POLYETHYLENE GLYCOL-EPOETIN BETA
     Indication: PRODUCT USED FOR UNKNOWN INDICATION
     Route: 040
     Dates: start: 20171117
  2. METOLAZONE. [Concomitant]
     Active Substance: METOLAZONE
     Dosage: 2 TABLET
     Route: 048
     Dates: start: 20160929
  3. MIRCERA [Suspect]
     Active Substance: METHOXY POLYETHYLENE GLYCOL-EPOETIN BETA
     Route: 040
     Dates: start: 20171213
  4. PHOSLO [Concomitant]
     Active Substance: CALCIUM ACETATE
     Route: 048
     Dates: start: 20170810
  5. BUSPIRONE [Concomitant]
     Active Substance: BUSPIRONE HYDROCHLORIDE
     Route: 048
     Dates: start: 20160929
  6. ISOSORBIDE MONONITRATE. [Concomitant]
     Active Substance: ISOSORBIDE MONONITRATE
     Route: 048
     Dates: start: 20160929
  7. MIRCERA [Suspect]
     Active Substance: METHOXY POLYETHYLENE GLYCOL-EPOETIN BETA
     Route: 040
     Dates: start: 20171220
  8. EMLA [Concomitant]
     Active Substance: LIDOCAINE\PRILOCAINE
     Dosage: 1 DOSAGE FORM
     Route: 061
     Dates: start: 20180119
  9. WARFARIN [Concomitant]
     Active Substance: WARFARIN
     Route: 048
     Dates: start: 20160930
  10. NEURONTIN [Concomitant]
     Active Substance: GABAPENTIN
     Route: 048
     Dates: start: 20170301
  11. SPIRONOLACTONE. [Concomitant]
     Active Substance: SPIRONOLACTONE
     Route: 048
     Dates: start: 20160930
  12. SINGULAIR [Concomitant]
     Active Substance: MONTELUKAST SODIUM
     Route: 048
     Dates: start: 20161228
  13. LEVOTHYROXINE. [Concomitant]
     Active Substance: LEVOTHYROXINE
     Route: 048
     Dates: start: 20160929

REACTIONS (2)
  - No adverse event [Unknown]
  - Inappropriate schedule of drug administration [Recovered/Resolved]

NARRATIVE: CASE EVENT DATE: 20171117
